FAERS Safety Report 8183260-3 (Version None)
Quarter: 2012Q1

REPORT INFORMATION
  Report Type: 
  Country: None (occurrence: None)
  Receive Date: 20120305
  Receipt Date: 20120223
  Transmission Date: 20120608
  Serious: Yes (Other)
  Sender: FDA-Public Use
  Company Number: US-BRISTOL-MYERS SQUIBB COMPANY-16414898

PATIENT
  Age: 59 Year
  Sex: Female
  Weight: 77 kg

DRUGS (2)
  1. VICODIN [Concomitant]
     Indication: PAIN
     Dosage: 1 DF : 5/500MG,BID
  2. COUMADIN [Suspect]
     Indication: DEEP VEIN THROMBOSIS
     Dosage: SINCE 7 MONTHS IN 2011
     Dates: start: 20110101, end: 20120126

REACTIONS (4)
  - YELLOW SKIN [None]
  - DRUG LEVEL INCREASED [None]
  - HEPATIC ENZYME INCREASED [None]
  - OEDEMA PERIPHERAL [None]
